FAERS Safety Report 5480705-4 (Version None)
Quarter: 2007Q4

REPORT INFORMATION
  Report Type: 
  Country: None (occurrence: None)
  Receive Date: 20071009
  Receipt Date: 20070926
  Transmission Date: 20080405
  Serious: Yes (Death)
  Sender: FDA-Public Use
  Company Number: US-ELI_LILLY_AND_COMPANY-US200709006241

PATIENT
  Age: 18 Year
  Sex: Female

DRUGS (3)
  1. CYMBALTA [Suspect]
     Indication: CENTRAL PAIN SYNDROME
     Dosage: 30 MG, DAILY (1/D)
     Dates: start: 20070101, end: 20070101
  2. CYMBALTA [Suspect]
     Dosage: 60 MG, DAILY (1/D)
     Dates: start: 20070101, end: 20070810
  3. SKELAXIN [Concomitant]

REACTIONS (1)
  - DEATH [None]
